FAERS Safety Report 4543314-7 (Version None)
Quarter: 2005Q1

REPORT INFORMATION
  Report Type: 
  Country: None (occurrence: None)
  Receive Date: 20041223
  Receipt Date: 20041110
  Transmission Date: 20050727
  Serious: No
  Sender: FDA-Public Use
  Company Number: US-JNJFOC-20041103254

PATIENT
  Age: 17 Year
  Sex: Female
  Weight: 58.9676 kg

DRUGS (11)
  1. ORTHO EVRA [Suspect]
     Indication: MENSTRUATION IRREGULAR
     Dosage: 1 DOSE(S), 3 IN 4 WEEK, TRANSDERMAL
     Route: 062
     Dates: start: 20041106
  2. ORTHO EVRA [Suspect]
     Indication: MIGRAINE
     Dosage: 1 DOSE(S), 3 IN 4 WEEK, TRANSDERMAL
     Route: 062
     Dates: start: 20041106
  3. LISINOPRIL [Concomitant]
  4. CONCERTA [Concomitant]
  5. ADDERALL (OBETROL) [Concomitant]
  6. TRAZADONE (TRAZODONE) [Concomitant]
  7. ZOLOFT [Concomitant]
  8. SYNTHROID [Concomitant]
  9. INSULIN [Concomitant]
  10. METHYLPHENIDATE HCL [Concomitant]
  11. ULTRACET [Concomitant]

REACTIONS (4)
  - APPLICATION SITE WARMTH [None]
  - BACK PAIN [None]
  - DYSMENORRHOEA [None]
  - NAUSEA [None]
